FAERS Safety Report 4595924-9 (Version None)
Quarter: 2005Q1

REPORT INFORMATION
  Report Type: 
  Country: None (occurrence: None)
  Receive Date: 20050224
  Receipt Date: 20050204
  Transmission Date: 20050727
  Serious: Yes (Hospitalization)
  Sender: FDA-Public Use
  Company Number: JP_041205498

PATIENT
  Age: 75 Year
  Sex: Female
  Weight: 43.0917 kg

DRUGS (3)
  1. EVISTA [Suspect]
     Indication: POSTMENOPAUSE
     Dosage: 60MG/1 DAY
     Dates: start: 20041025, end: 20041101
  2. ALFAROL (ALFACALCIDOL) [Concomitant]
  3. ASPARA-CA (ASPARTATE CALCIUM) [Concomitant]

REACTIONS (2)
  - MYELODYSPLASTIC SYNDROME [None]
  - PLATELET COUNT DECREASED [None]
